FAERS Safety Report 10215165 (Version 2)
Quarter: 2014Q2

REPORT INFORMATION
  Report Type: Spontaneous
  Country: MY (occurrence: MY)
  Receive Date: 20140603
  Receipt Date: 20140605
  Transmission Date: 20141212
  Serious: Yes (Other)
  Sender: FDA-Public Use
  Company Number: ALCN2014MY003232

PATIENT
  Age: 2 Month
  Sex: Male
  Weight: 1.72 kg

DRUGS (1)
  1. CYCLOMYDRIL [Suspect]
     Indication: MYDRIASIS
     Dosage: 1 GTT EVERY 10 MINUTES X 3
     Route: 047
     Dates: start: 20110523, end: 20110523

REACTIONS (5)
  - Apnoea [Recovered/Resolved]
  - Cyanosis [Recovered/Resolved]
  - Lethargy [Recovered/Resolved]
  - Oxygen saturation decreased [Recovered/Resolved]
  - Heart rate decreased [Recovered/Resolved]
